FAERS Safety Report 11122951 (Version 4)
Quarter: 2020Q2

REPORT INFORMATION
  Report Type: Report from Study
  Country: CA (occurrence: CA)
  Receive Date: 20150519
  Receipt Date: 20200429
  Transmission Date: 20200713
  Serious: Yes (Hospitalization)
  Sender: FDA-Public Use
  Company Number: CA-009507513-1505CAN006208

PATIENT
  Age: 44 Year
  Sex: Female

DRUGS (5)
  1. TASIGNA [Suspect]
     Active Substance: NILOTINIB
     Indication: CHRONIC MYELOID LEUKAEMIA
     Dosage: 400 MILLIGRAM, BID (2 EVERY 1 DAY)
     Route: 048
     Dates: start: 200910, end: 2016
  2. DASATINIB. [Suspect]
     Active Substance: DASATINIB
     Indication: PRODUCT USED FOR UNKNOWN INDICATION
     Dosage: UNK
     Route: 065
  3. CYMBALTA [Concomitant]
     Active Substance: DULOXETINE HYDROCHLORIDE
     Indication: PRODUCT USED FOR UNKNOWN INDICATION
     Dosage: FORMULATION: NOT SPECIFIED
     Route: 065
  4. REMERON [Suspect]
     Active Substance: MIRTAZAPINE
     Indication: INSOMNIA
     Dosage: UNK
     Route: 065
  5. RIVOTRIL [Concomitant]
     Active Substance: CLONAZEPAM
     Indication: PRODUCT USED FOR UNKNOWN INDICATION
     Dosage: UNK
     Route: 065

REACTIONS (19)
  - Hot flush [Unknown]
  - Dyspnoea [Unknown]
  - Nightmare [Unknown]
  - Myalgia [Unknown]
  - Bronchitis [Unknown]
  - Insomnia [Unknown]
  - Swelling [Unknown]
  - Palpitations [Unknown]
  - Rash [Unknown]
  - Arthralgia [Unknown]
  - Cardiac murmur [Unknown]
  - Gastrointestinal disorder [Unknown]
  - Ventricular extrasystoles [Unknown]
  - Pruritus [Unknown]
  - Fatigue [Unknown]
  - Dyspepsia [Unknown]
  - Acne [Unknown]
  - Cardiovascular disorder [Unknown]
  - Pulmonary oedema [Unknown]

NARRATIVE: CASE EVENT DATE: 201301
